FAERS Safety Report 17652915 (Version 2)
Quarter: 2020Q2

REPORT INFORMATION
  Report Type: Spontaneous
  Country: CN (occurrence: CN)
  Receive Date: 20200409
  Receipt Date: 20200416
  Transmission Date: 20200713
  Serious: Yes (Death, Other)
  Sender: FDA-Public Use
  Company Number: CN-ASTELLAS-2020US011800

PATIENT
  Age: 85 Year
  Sex: Male

DRUGS (3)
  1. BICALUTAMIDE. [Suspect]
     Active Substance: BICALUTAMIDE
     Indication: PROSTATE CANCER
     Dosage: UNK UNK, UNKNOWN FREQ.
     Route: 048
  2. XTANDI [Suspect]
     Active Substance: ENZALUTAMIDE
     Indication: PROSTATE CANCER
     Route: 048
     Dates: start: 20200314, end: 20200327
  3. XTANDI [Suspect]
     Active Substance: ENZALUTAMIDE
     Route: 048
     Dates: start: 20200328, end: 20200331

REACTIONS (8)
  - Metastases to liver [Fatal]
  - Blood pressure decreased [Fatal]
  - Metastasis [Fatal]
  - Gastrointestinal haemorrhage [Fatal]
  - Intentional underdose [Unknown]
  - Shock [Fatal]
  - Prostate cancer [Fatal]
  - Acidosis [Fatal]

NARRATIVE: CASE EVENT DATE: 20200314
